FAERS Safety Report 20923384 (Version 4)
Quarter: 2023Q1

REPORT INFORMATION
  Report Type: Spontaneous
  Country: JP (occurrence: JP)
  Receive Date: 20220607
  Receipt Date: 20230124
  Transmission Date: 20230418
  Serious: Yes (Hospitalization)
  Sender: FDA-Public Use
  Company Number: JP-BAYER-2022A077682

PATIENT
  Sex: Male

DRUGS (31)
  1. EYLEA [Suspect]
     Active Substance: AFLIBERCEPT
     Indication: Age-related macular degeneration
     Dosage: 0.05 ML, ONCE (LEFT EYE); SOLUTION FOR INJECTION IN PRE-FILLED SYRINGE, STRENGTH: 40 MG/ML
     Route: 031
     Dates: start: 20140502
  2. EYLEA [Suspect]
     Active Substance: AFLIBERCEPT
     Dosage: 0.05 ML, ONCE (LEFT EYE); SOLUTION FOR INJECTION IN PRE-FILLED SYRINGE, STRENGTH: 40 MG/ML
     Route: 031
     Dates: start: 20210303, end: 20210303
  3. EYLEA [Suspect]
     Active Substance: AFLIBERCEPT
     Dosage: 0.05 ML, ONCE (LEFT EYE); SOLUTION FOR INJECTION IN PRE-FILLED SYRINGE, STRENGTH: 40 MG/ML
     Route: 031
     Dates: start: 20210409, end: 20210409
  4. EYLEA [Suspect]
     Active Substance: AFLIBERCEPT
     Dosage: 0.05 ML, ONCE (LEFT EYE); SOLUTION FOR INJECTION IN PRE-FILLED SYRINGE, STRENGTH: 40 MG/ML
     Route: 031
     Dates: start: 20210514, end: 20210514
  5. EYLEA [Suspect]
     Active Substance: AFLIBERCEPT
     Dosage: 0.05 ML, ONCE (LEFT EYE); SOLUTION FOR INJECTION IN PRE-FILLED SYRINGE, STRENGTH: 40 MG/ML
     Route: 031
     Dates: start: 20210716, end: 20210716
  6. EYLEA [Suspect]
     Active Substance: AFLIBERCEPT
     Dosage: 0.05 ML, ONCE (LEFT EYE); SOLUTION FOR INJECTION IN PRE-FILLED SYRINGE, STRENGTH: 40 MG/ML
     Route: 031
     Dates: start: 20211001, end: 20211001
  7. EYLEA [Suspect]
     Active Substance: AFLIBERCEPT
     Dosage: 0.05 ML, ONCE (LEFT EYE); SOLUTION FOR INJECTION IN PRE-FILLED SYRINGE, STRENGTH: 40 MG/ML
     Route: 031
     Dates: start: 20220128, end: 20220128
  8. EYLEA [Suspect]
     Active Substance: AFLIBERCEPT
     Dosage: 0.05 ML, ONCE (LEFT EYE); SOLUTION FOR INJECTION IN PRE-FILLED SYRINGE, STRENGTH: 40 MG/ML
     Route: 031
     Dates: start: 20220318, end: 20220318
  9. EYLEA [Suspect]
     Active Substance: AFLIBERCEPT
     Dosage: 0.05 ML, ONCE (LEFT EYE); SOLUTION FOR INJECTION IN PRE-FILLED SYRINGE, STRENGTH: 40 MG/ML
     Route: 031
     Dates: start: 20220520, end: 20220520
  10. EYLEA [Suspect]
     Active Substance: AFLIBERCEPT
     Dosage: 32TIMES, SOLUTION FOR INJECTION IN PRE-FILLED SYRINGE, 40MG/ML
  11. LUCENTIS [Concomitant]
     Active Substance: RANIBIZUMAB
     Indication: Product used for unknown indication
     Dosage: 0.05 ML, ONCE (LEFT EYE)
     Route: 031
     Dates: start: 20200306, end: 20200306
  12. GATIFLOXACIN [Concomitant]
     Active Substance: GATIFLOXACIN
     Indication: Postoperative care
     Dosage: LEFT EYE, QID
     Route: 047
     Dates: start: 20210303, end: 20210306
  13. GATIFLOXACIN [Concomitant]
     Active Substance: GATIFLOXACIN
     Indication: Conjunctivitis
     Dosage: LEFT EYE, QID
     Route: 047
     Dates: start: 20210409, end: 20210412
  14. GATIFLOXACIN [Concomitant]
     Active Substance: GATIFLOXACIN
     Dosage: LEFT EYE, QID
     Route: 047
     Dates: start: 20210514, end: 20210517
  15. GATIFLOXACIN [Concomitant]
     Active Substance: GATIFLOXACIN
     Dosage: LEFT EYE, QID
     Route: 047
     Dates: start: 20210716, end: 20210719
  16. GATIFLOXACIN [Concomitant]
     Active Substance: GATIFLOXACIN
     Dosage: LEFT EYE, QID
     Route: 047
     Dates: start: 20211001, end: 20211004
  17. GATIFLOXACIN [Concomitant]
     Active Substance: GATIFLOXACIN
     Dosage: BOTH EYES, QID
     Route: 047
     Dates: start: 20220117, end: 20220124
  18. GATIFLOXACIN [Concomitant]
     Active Substance: GATIFLOXACIN
     Dosage: LEFT EYE, QID
     Route: 047
     Dates: start: 20220128, end: 20220131
  19. GATIFLOXACIN [Concomitant]
     Active Substance: GATIFLOXACIN
     Dosage: LEFT EYE, QID
     Route: 047
     Dates: start: 20220318, end: 20220321
  20. MOXIFLOXACIN [Concomitant]
     Active Substance: MOXIFLOXACIN
     Indication: Postoperative care
     Dosage: LEFT EYE, QID
     Route: 047
     Dates: start: 20220330
  21. MOXIFLOXACIN [Concomitant]
     Active Substance: MOXIFLOXACIN
     Dosage: LEFT EYE, TID
     Route: 047
     Dates: start: 20220602
  22. MOXIFLOXACIN [Concomitant]
     Active Substance: MOXIFLOXACIN
     Dosage: LEFT EYE, BID
     Route: 047
     Dates: start: 20220607, end: 20220621
  23. MOXIFLOXACIN [Concomitant]
     Active Substance: MOXIFLOXACIN
     Dosage: LEFT EYE, BID
     Route: 047
     Dates: start: 20220607, end: 20220621
  24. DEXAMETHASONE [Concomitant]
     Active Substance: DEXAMETHASONE
     Indication: Postoperative care
     Dosage: LEFT EYE, QID
     Route: 047
     Dates: start: 20220330
  25. DEXAMETHASONE [Concomitant]
     Active Substance: DEXAMETHASONE
     Indication: Non-infectious endophthalmitis
     Dosage: LEFT EYE, 6ID
     Route: 047
     Dates: start: 20220523
  26. DEXAMETHASONE [Concomitant]
     Active Substance: DEXAMETHASONE
     Dosage: LEFT EYE, QID
     Route: 047
     Dates: start: 20220530
  27. DEXAMETHASONE [Concomitant]
     Active Substance: DEXAMETHASONE
     Dosage: LEFT EYE, TID
     Route: 047
     Dates: start: 20220602
  28. DEXAMETHASONE [Concomitant]
     Active Substance: DEXAMETHASONE
     Dosage: LEFT EYE, BID
     Route: 047
     Dates: start: 20220607, end: 20220621
  29. NEVANAC [Concomitant]
     Active Substance: NEPAFENAC
     Indication: Postoperative care
     Dosage: LEFT EYE, QID
     Route: 047
     Dates: start: 20220330
  30. NEVANAC [Concomitant]
     Active Substance: NEPAFENAC
     Indication: Non-infectious endophthalmitis
     Dosage: LEFT EYE, TID
     Route: 047
     Dates: start: 20220602, end: 20220621
  31. RANIBIZUMAB [Concomitant]
     Active Substance: RANIBIZUMAB
     Indication: Product used for unknown indication
     Dosage: ONCE

REACTIONS (23)
  - Vitreous opacities [Recovering/Resolving]
  - Visual acuity reduced [Recovering/Resolving]
  - Corneal striae [Recovering/Resolving]
  - Retinal vasculitis [Recovering/Resolving]
  - Vitreous floaters [Recovering/Resolving]
  - Uveitis [Recovering/Resolving]
  - Non-infectious endophthalmitis [Recovering/Resolving]
  - Vitreous fibrin [Recovering/Resolving]
  - Eye pain [Recovering/Resolving]
  - Ocular hyperaemia [Recovering/Resolving]
  - Lacrimation increased [Recovering/Resolving]
  - Vision blurred [Recovering/Resolving]
  - Corneal oedema [Recovering/Resolving]
  - Visual acuity reduced [Recovering/Resolving]
  - Retinal haemorrhage [Recovering/Resolving]
  - Ocular vasculitis [Recovering/Resolving]
  - Vitreous floaters [Recovering/Resolving]
  - Anterior chamber cell [Recovering/Resolving]
  - Anterior chamber fibrin [Recovering/Resolving]
  - Corneal oedema [Recovering/Resolving]
  - Serous retinal detachment [Recovering/Resolving]
  - Non-infectious endophthalmitis [Recovering/Resolving]
  - Drug hypersensitivity [Recovering/Resolving]

NARRATIVE: CASE EVENT DATE: 20220128
